FAERS Safety Report 6189800-8 (Version None)
Quarter: 2009Q2

REPORT INFORMATION
  Report Type: 
  Country: None (occurrence: None)
  Receive Date: 20090514
  Receipt Date: 20090506
  Transmission Date: 20091009
  Serious: Yes (Hospitalization)
  Sender: FDA-Public Use
  Company Number: FR-ASTRAZENECA-2009CG00854

PATIENT
  Age: 35 Year
  Sex: Female

DRUGS (7)
  1. ENTOCORT EC [Suspect]
     Route: 048
     Dates: start: 20090124, end: 20090101
  2. ENTOCORT EC [Suspect]
     Route: 048
     Dates: start: 20090101
  3. COMBIVIR [Suspect]
     Route: 048
     Dates: start: 20070501
  4. KALETRA [Suspect]
     Route: 048
     Dates: start: 20070501
  5. SEROPLEX [Concomitant]
     Dates: start: 20081201
  6. LEXOMIL [Concomitant]
     Dates: start: 20081201
  7. IMUREL [Concomitant]
     Route: 048
     Dates: start: 20090101

REACTIONS (1)
  - DIABETES MELLITUS [None]
